FAERS Safety Report 7824333-1 (Version None)
Quarter: 2011Q4

REPORT INFORMATION
  Report Type: 
  Country: None (occurrence: None)
  Receive Date: 20111019
  Receipt Date: 20111009
  Transmission Date: 20120403
  Serious: Yes (Other)
  Sender: FDA-Public Use
  Company Number: JP-BRISTOL-MYERS SQUIBB COMPANY-16163743

PATIENT
  Age: 71 Year
  Sex: Male

DRUGS (4)
  1. EPIRUBICIN [Suspect]
  2. CARBOPLATIN [Suspect]
     Dosage: ON DAY 1
  3. FLUOROURACIL [Suspect]
     Dosage: ON DAYS1 1-5
  4. ETOPOSIDE [Suspect]
     Dosage: ON DAY 1-3

REACTIONS (3)
  - THROMBOCYTOPENIA [None]
  - DECREASED APPETITE [None]
  - AGRANULOCYTOSIS [None]
